FAERS Safety Report 6218093-8 (Version None)
Quarter: 2009Q2

REPORT INFORMATION
  Report Type: 
  Country: None (occurrence: None)
  Receive Date: 20090608
  Receipt Date: 20090528
  Transmission Date: 20091009
  Serious: Yes (Death)
  Sender: FDA-Public Use
  Company Number: PHEH2009US05696

PATIENT

DRUGS (1)
  1. EXJADE [Suspect]
     Dosage: 1500 MG/DAY
     Route: 048
     Dates: start: 20070307, end: 20090516

REACTIONS (1)
  - DEATH [None]
